FAERS Safety Report 4796164-0 (Version None)
Quarter: 2005Q4

REPORT INFORMATION
  Report Type: 
  Country: None (occurrence: None)
  Receive Date: 20051007
  Receipt Date: 20050923
  Transmission Date: 20060501
  Serious: Yes (Other)
  Sender: FDA-Public Use
  Company Number: 2005BI017852

PATIENT
  Age: 66 Year
  Sex: Male

DRUGS (1)
  1. AVONEX [Suspect]
     Indication: MULTIPLE SCLEROSIS
     Dosage: 30 UG; QW; IM
     Route: 030
     Dates: start: 20040227

REACTIONS (4)
  - BONE NEOPLASM MALIGNANT [None]
  - JAW DISORDER [None]
  - OSTEOMYELITIS [None]
  - POSTOPERATIVE INFECTION [None]
